FAERS Safety Report 23298008 (Version 1)
Quarter: 2023Q4

REPORT INFORMATION
  Report Type: Spontaneous
  Country: US (occurrence: US)
  Receive Date: 20231214
  Receipt Date: 20231214
  Transmission Date: 20240110
  Serious: No
  Sender: FDA-Public Use
  Company Number: US-BRISTOL-MYERS SQUIBB COMPANY-2023-179978

PATIENT
  Age: 84 Year
  Sex: Female

DRUGS (3)
  1. REVLIMID [Suspect]
     Active Substance: LENALIDOMIDE
     Indication: Metastases to breast
     Route: 048
     Dates: start: 202306
  2. TAGRISSO [Suspect]
     Active Substance: OSIMERTINIB
     Indication: Plasma cell myeloma
  3. TAGRISSO [Suspect]
     Active Substance: OSIMERTINIB
     Indication: Metastases to breast

REACTIONS (2)
  - Vaginal haemorrhage [Recovered/Resolved]
  - Off label use [Unknown]
